FAERS Safety Report 5475829-1 (Version None)
Quarter: 2007Q4

REPORT INFORMATION
  Report Type: 
  Country: None (occurrence: None)
  Receive Date: 20071003
  Receipt Date: 20070926
  Transmission Date: 20080405
  Serious: Yes (Death)
  Sender: FDA-Public Use
  Company Number: B0488974A

PATIENT
  Age: 71 Year
  Sex: Male

DRUGS (6)
  1. COMBIVIR [Suspect]
     Dosage: 1TAB TWICE PER DAY
     Route: 048
     Dates: start: 20070608
  2. KALETRA [Suspect]
     Route: 048
     Dates: start: 20070608
  3. VIRACEPT [Suspect]
     Route: 048
     Dates: start: 19971201, end: 20070608
  4. ELISOR [Concomitant]
     Route: 065
     Dates: start: 20020201
  5. KARDEGIC [Concomitant]
     Route: 065
     Dates: start: 20031101
  6. LODOZ [Concomitant]
     Route: 065
     Dates: start: 20011001

REACTIONS (3)
  - CARDIAC DISORDER [None]
  - DYSPNOEA [None]
  - MALAISE [None]
